FAERS Safety Report 9610362 (Version 2)
Quarter: 2013Q4

REPORT INFORMATION
  Report Type: Spontaneous
  Country: US (occurrence: US)
  Receive Date: 20131009
  Receipt Date: 20131009
  Transmission Date: 20140711
  Serious: No
  Sender: FDA-Public Use
  Company Number: US-PURDUE-USA-2012-0096875

PATIENT
  Sex: Female

DRUGS (3)
  1. BUTRANS [Suspect]
     Indication: PAIN
     Dosage: 20 MCG, 1/WEEK
     Route: 062
  2. BUTRANS [Suspect]
     Dosage: 5 MCG, UNK
     Route: 062
  3. BUTRANS [Suspect]
     Dosage: 10 MCG, UNK
     Route: 062

REACTIONS (13)
  - Product adhesion issue [Unknown]
  - Drug screen negative [Not Recovered/Not Resolved]
  - Application site discolouration [Unknown]
  - Product size issue [Unknown]
  - Muscle spasms [Recovered/Resolved]
  - Pain in extremity [Recovered/Resolved]
  - Application site pruritus [Not Recovered/Not Resolved]
  - Application site erythema [Not Recovered/Not Resolved]
  - Application site irritation [Unknown]
  - Application site rash [Unknown]
  - Somnolence [Not Recovered/Not Resolved]
  - Drug effect decreased [Recovered/Resolved]
  - Application site discomfort [Unknown]
